FAERS Safety Report 6156210-9 (Version None)
Quarter: 2009Q2

REPORT INFORMATION
  Report Type: 
  Country: None (occurrence: None)
  Receive Date: 20090415
  Receipt Date: 20090313
  Transmission Date: 20091009
  Serious: Yes (Other)
  Sender: FDA-Public Use
  Company Number: JP-PFIZER INC-2009187033

PATIENT

DRUGS (1)
  1. CHAMPIX [Suspect]

REACTIONS (3)
  - AGEUSIA [None]
  - NAUSEA [None]
  - PARAESTHESIA ORAL [None]
